FAERS Safety Report 5858344-2 (Version None)
Quarter: 2008Q3

REPORT INFORMATION
  Report Type: 
  Country: None (occurrence: None)
  Receive Date: 20080826
  Receipt Date: 20080818
  Transmission Date: 20090109
  Serious: Yes (Hospitalization)
  Sender: FDA-Public Use
  Company Number: PHHY2008JP17439

PATIENT
  Age: 50 Year
  Sex: Male

DRUGS (4)
  1. DIOVAN [Suspect]
     Indication: HYPERTENSION
     Dosage: 40 MG, QD
     Route: 048
     Dates: start: 20080604, end: 20080709
  2. DIOVAN [Suspect]
     Dosage: 80 MG, DAILY
     Route: 048
     Dates: start: 20080709
  3. LANDEL [Concomitant]
     Dosage: UNK
     Route: 048
     Dates: start: 20080604, end: 20080709
  4. TENORMIN [Concomitant]
     Dosage: UNK
     Dates: start: 20080604

REACTIONS (4)
  - DYSARTHRIA [None]
  - LACUNAR INFARCTION [None]
  - MUSCULAR WEAKNESS [None]
  - NEUROSURGERY [None]
